FAERS Safety Report 8100487-7 (Version None)
Quarter: 2012Q1

REPORT INFORMATION
  Report Type: 
  Country: None (occurrence: None)
  Receive Date: 20120129
  Receipt Date: 20111102
  Transmission Date: 20120608
  Serious: No
  Sender: FDA-Public Use
  Company Number: US-ABBOTT-11P-163-0870690-00

PATIENT
  Age: 48 Year
  Sex: Male

DRUGS (4)
  1. OXYCONTIN [Concomitant]
     Indication: PAIN
  2. SIMVASTATIN [Concomitant]
     Indication: BLOOD CHOLESTEROL INCREASED
     Dates: start: 20030101
  3. LISINOPRIL [Concomitant]
     Indication: HYPERTENSION
     Dates: start: 20030101
  4. HUMIRA [Suspect]
     Indication: RHEUMATOID ARTHRITIS
     Dates: start: 20110801

REACTIONS (4)
  - MUSCULOSKELETAL STIFFNESS [None]
  - DRUG INEFFECTIVE [None]
  - DEVICE MALFUNCTION [None]
  - ARTHRALGIA [None]
